FAERS Safety Report 13925099 (Version 1)
Quarter: 2017Q3

REPORT INFORMATION
  Report Type: Spontaneous
  Country: DE (occurrence: DE)
  Receive Date: 20170831
  Receipt Date: 20170831
  Transmission Date: 20171127
  Serious: Yes (Disabling)
  Sender: FDA-Public Use
  Company Number: DE-JNJFOC-20170801519

PATIENT
  Age: 87 Year
  Sex: Female

DRUGS (9)
  1. PREDNISOLONE. [Concomitant]
     Active Substance: PREDNISOLONE
     Indication: DERMATITIS
     Route: 048
     Dates: start: 20170619
  2. CALCIUM [Concomitant]
     Active Substance: CALCIUM
     Route: 065
  3. IMBRUVICA [Suspect]
     Active Substance: IBRUTINIB
     Indication: ABDOMINAL NEOPLASM
     Route: 048
  4. IMBRUVICA [Suspect]
     Active Substance: IBRUTINIB
     Indication: ABDOMINAL NEOPLASM
     Route: 048
     Dates: start: 20170314
  5. ALENDRONIC ACID [Concomitant]
     Active Substance: ALENDRONIC ACID
     Indication: OSTEOPOROSIS
     Route: 048
     Dates: start: 20170101
  6. IMBRUVICA [Suspect]
     Active Substance: IBRUTINIB
     Indication: ABDOMINAL NEOPLASM
     Route: 048
  7. TAMOXIFEN [Concomitant]
     Active Substance: TAMOXIFEN
     Indication: BREAST CANCER
     Route: 065
     Dates: start: 20170404
  8. TORASEMID [Concomitant]
     Active Substance: TORSEMIDE
     Route: 065
  9. ELIQUIS [Interacting]
     Active Substance: APIXABAN
     Indication: ARRHYTHMIA
     Route: 048
     Dates: start: 20170106

REACTIONS (4)
  - Product use in unapproved indication [Unknown]
  - Skin haemorrhage [Not Recovered/Not Resolved]
  - Drug interaction [Not Recovered/Not Resolved]
  - Off label use [Unknown]

NARRATIVE: CASE EVENT DATE: 20170314
